FAERS Safety Report 8895970 (Version 1)
Quarter: 2012Q4

REPORT INFORMATION
  Report Type: Report from Study
  Country: US (occurrence: US)
  Receive Date: 20121108
  Receipt Date: 20121108
  Transmission Date: 20130627
  Serious: Yes (Hospitalization)
  Sender: FDA-Public Use
  Company Number: US-PFIZER INC-2012276419

PATIENT
  Age: 4 Year
  Sex: Female

DRUGS (40)
  1. DEXAMETHASONE SODIUM PHOSPHATE [Suspect]
     Indication: ACUTE LYMPHOCYTIC LEUKAEMIA
     Dosage: 3.5 mg, 2/1 day
     Route: 048
     Dates: start: 20120416
  2. DEXAMETHASONE SODIUM PHOSPHATE [Suspect]
     Dosage: 10mg
     Route: 048
     Dates: start: 20120905
  3. DEXAMETHASONE SODIUM PHOSPHATE [Suspect]
     Dosage: 15mg
     Route: 048
     Dates: start: 20120906, end: 20120909
  4. DEXAMETHASONE SODIUM PHOSPHATE [Suspect]
     Dosage: 5mg
     Route: 048
     Dates: start: 20120910
  5. HYDROCORTISONE SODIUM SUCCINATE [Suspect]
     Dosage: UNK
     Route: 037
     Dates: start: 20120814
  6. HYDROCORTISONE SODIUM SUCCINATE [Suspect]
     Dosage: 12mg
     Route: 037
     Dates: start: 20120909
  7. CYTARABINE [Suspect]
     Indication: ACUTE LYMPHOCYTIC LEUKAEMIA
     Dosage: 30mg
     Route: 037
     Dates: start: 20120814
  8. CYTARABINE [Suspect]
     Dosage: 2800mg
     Route: 042
     Dates: start: 20120905, end: 20120906
  9. CYTARABINE [Suspect]
     Dosage: 30mg
     Route: 042
     Dates: start: 20120909
  10. METHOTREXATE SODIUM [Suspect]
     Indication: ACUTE LYMPHOCYTIC LEUKAEMIA
     Dosage: 3500mg
     Route: 042
     Dates: start: 20120814
  11. METHOTREXATE SODIUM [Suspect]
     Dosage: 12mg
     Route: 037
     Dates: start: 20120909
  12. ETOPOSIDE [Suspect]
     Indication: ACUTE LYMPHOBLASTIC LEUKEMIA
     Dosage: 140mg
     Route: 042
     Dates: start: 20120907, end: 20120908
  13. ETOPOSIDE [Suspect]
     Dosage: 70mg
     Route: 042
     Dates: start: 20120909
  14. DASATINIB [Suspect]
     Indication: ACUTE LYMPHOCYTIC LEUKAEMIA
     Dosage: 45 mg, 1 day
     Route: 048
     Dates: start: 20120430
  15. DAUNORUBICIN HYDROCHLORIDE [Suspect]
     Indication: ACUTE LYMPHOCYTIC LEUKAEMIA
     Dosage: 18 mg, UNK
     Route: 042
     Dates: start: 20120818
  16. IFOSFAMIDE [Suspect]
     Dosage: 1120 mg, UNK
     Route: 042
     Dates: start: 20120815, end: 20120817
  17. IFOSFAMIDE [Suspect]
     Dosage: UNK
  18. L-ASPARAGINASE [Suspect]
     Indication: ACUTE LYMPHOCYTIC LEUKAEMIA
     Dosage: 1 dosage form, 17500 units
     Route: 042
     Dates: start: 20120719, end: 20120819
  19. VINCRISTINE SULFATE [Suspect]
     Dosage: 1.1 mg, 7 day
     Route: 042
     Dates: start: 20120815
  20. PEGASPARGASE [Suspect]
     Dosage: 1775 IU, UNK
     Dates: start: 20120820
  21. ZANTAC [Concomitant]
     Dosage: UNK
     Dates: start: 20120416, end: 20120820
  22. ZANTAC [Concomitant]
     Dosage: UNK
     Dates: start: 20120815
  23. ZOFRAN [Concomitant]
     Dosage: UNK
     Dates: start: 20120430, end: 20120820
  24. BENADRYL [Concomitant]
     Dosage: UNK
     Dates: start: 20120724, end: 20120819
  25. FILGRASTIM [Concomitant]
     Dosage: UNK
     Dates: start: 20120730, end: 20120827
  26. LEUCOVORIN [Concomitant]
     Dosage: UNK
     Dates: start: 20120726, end: 20120816
  27. ATIVAN [Concomitant]
     Dosage: UNK
     Dates: start: 20120724, end: 20120819
  28. MAGIC MOUTHWASH [Concomitant]
     Dosage: UNK
     Dates: start: 20120801, end: 20120829
  29. NYSTATIN [Concomitant]
     Dosage: UNK
     Dates: start: 20120729, end: 20120830
  30. PREDNISOLONE [Concomitant]
     Dosage: UNK
     Dates: start: 20120728, end: 20120802
  31. SEPTRA [Concomitant]
     Dosage: UNK
     Dates: start: 201204
  32. KETAMINE [Concomitant]
     Dosage: UNK
     Dates: start: 20120724, end: 20120814
  33. VERSED [Concomitant]
     Dosage: UNK
     Dates: start: 20120814, end: 20120814
  34. MORPHINE [Concomitant]
     Dosage: UNK
     Dates: start: 20120820, end: 20120829
  35. MIRALAX [Concomitant]
     Dosage: UNK
     Dates: start: 20120416, end: 20120829
  36. MESNA [Concomitant]
     Dosage: UNK
     Dates: start: 20120815, end: 20120817
  37. DIPHENHYDRAMINE [Concomitant]
     Dosage: UNK
     Dates: start: 20120814, end: 20120819
  38. LORAZEPAM [Concomitant]
     Dosage: UNK
     Dates: start: 20120814, end: 20120819
  39. SODIUM BICARBONATE [Concomitant]
     Dosage: UNK
     Dates: start: 20120814, end: 20120829
  40. CEFEPIME HYDROCHLORIDE [Concomitant]
     Dosage: UNK
     Dates: start: 20120413, end: 20120420

REACTIONS (3)
  - Mucosal inflammation [Recovered/Resolved]
  - Febrile neutropenia [Recovered/Resolved]
  - Hypersensitivity [Recovered/Resolved with Sequelae]
